FAERS Safety Report 24465184 (Version 1)
Quarter: 2024Q4

REPORT INFORMATION
  Report Type: Report from Study
  Country: US (occurrence: US)
  Receive Date: 20241018
  Receipt Date: 20241018
  Transmission Date: 20250115
  Serious: No
  Sender: ROCHE
  Company Number: US-ROCHE-3529835

PATIENT
  Age: 58 Year
  Sex: Female
  Weight: 85.28 kg

DRUGS (4)
  1. XOLAIR [Suspect]
     Active Substance: OMALIZUMAB
     Indication: Asthma
     Route: 030
     Dates: start: 20230414
  2. XOLAIR [Suspect]
     Active Substance: OMALIZUMAB
     Indication: Nasal polyps
     Route: 030
  3. XOLAIR [Suspect]
     Active Substance: OMALIZUMAB
     Indication: Hypersensitivity
  4. XOLAIR [Suspect]
     Active Substance: OMALIZUMAB
     Indication: Asthma

REACTIONS (4)
  - Off label use [Unknown]
  - Sleep apnoea syndrome [Unknown]
  - Illness [Unknown]
  - Off label use [Unknown]

NARRATIVE: CASE EVENT DATE: 20230414
